FAERS Safety Report 8244785-5 (Version None)
Quarter: 2012Q1

REPORT INFORMATION
  Report Type: 
  Country: None (occurrence: None)
  Receive Date: 20120329
  Receipt Date: 20110405
  Transmission Date: 20120608
  Serious: No
  Sender: FDA-Public Use
  Company Number: -MYLANLABS-2011S1007285

PATIENT
  Sex: Female

DRUGS (3)
  1. METFORMIN HCL [Concomitant]
     Indication: DIABETES MELLITUS
  2. FENTANYL-100 [Suspect]
     Dosage: Q 72 HOURS
     Route: 062
     Dates: end: 20110301
  3. FENTANYL-100 [Suspect]
     Indication: ARTHRITIS
     Dosage: Q 72 HOURS
     Route: 062
     Dates: end: 20110301

REACTIONS (2)
  - APPLICATION SITE PRURITUS [None]
  - APPLICATION SITE EROSION [None]
